FAERS Safety Report 6271979-0 (Version None)
Quarter: 2009Q3

REPORT INFORMATION
  Report Type: 
  Country: None (occurrence: None)
  Receive Date: 20090717
  Receipt Date: 20090708
  Transmission Date: 20100115
  Serious: Yes (Disabling)
  Sender: FDA-Public Use
  Company Number: FR-ASTRAZENECA-2004CG01837

PATIENT
  Age: 28316 Day
  Sex: Female
  Weight: 63 kg

DRUGS (4)
  1. NAROPIN [Suspect]
     Indication: LOCAL ANAESTHESIA
     Route: 053
     Dates: start: 20040713, end: 20040713
  2. PERINDOPRIL [Concomitant]
     Indication: HYPERTENSION
  3. INDAPAMIDE [Concomitant]
     Indication: HYPERTENSION
  4. MIANSERINE [Concomitant]
     Indication: DEPRESSION

REACTIONS (1)
  - RETINAL ARTERY OCCLUSION [None]
